FAERS Safety Report 5470351-0 (Version None)
Quarter: 2007Q3

REPORT INFORMATION
  Report Type: 
  Country: None (occurrence: None)
  Receive Date: 20070925
  Receipt Date: 20070913
  Transmission Date: 20080115
  Serious: Yes (Hospitalization)
  Sender: FDA-Public Use
  Company Number: GXKR2007NL07965

PATIENT
  Age: 37 Year
  Sex: Female

DRUGS (3)
  1. PARACETAMOL (NGX)(PARACETAMOL) UNKNOWN [Suspect]
     Indication: PYREXIA
  2. VALPROIC ACID [Suspect]
     Indication: MYOCLONIC EPILEPSY
     Dosage: 27 MG/KG/DAY
  3. CLOBAZAM (CLOBAZAM) [Concomitant]

REACTIONS (5)
  - AMMONIA INCREASED [None]
  - DRUG INTERACTION [None]
  - HEPATOTOXICITY [None]
  - LIVER INJURY [None]
  - TRANSAMINASES INCREASED [None]
